FAERS Safety Report 9688898 (Version 1)
Quarter: 2013Q4

REPORT INFORMATION
  Report Type: Spontaneous
  Country: US (occurrence: None)
  Receive Date: 20131113
  Receipt Date: 20131113
  Transmission Date: 20140711
  Serious: Yes (Hospitalization)
  Sender: FDA-Public Use
  Company Number: FK201304880

PATIENT
  Age: 67 Year
  Sex: Female

DRUGS (7)
  1. IFOSFAMIDE [Suspect]
     Indication: OVARIAN CANCER
     Dosage: 1500 MG/M2, DAILY OVER 90 MIN, INTRAVENOUS
     Route: 042
  2. CISPLATIN [Suspect]
     Indication: OVARIAN CANCER
     Dosage: 20 MG/M2
  3. APREPITANT [Suspect]
     Indication: PREMEDICATION
  4. MESNA (MESNA) [Concomitant]
  5. ONDANSETRON (ONDANSETRON) [Concomitant]
  6. DEXAMETHASONE (DESAMETHASONE) [Concomitant]
  7. METOCLOPRAMIDE (METOCLOPRAMIDE) [Concomitant]

REACTIONS (6)
  - Drug interaction [None]
  - Nausea [None]
  - Vomiting [None]
  - Febrile neutropenia [None]
  - Coma [None]
  - Neurotoxicity [None]
